FAERS Safety Report 6046768-2 (Version None)
Quarter: 2009Q1

REPORT INFORMATION
  Report Type: 
  Country: None (occurrence: None)
  Receive Date: 20090122
  Receipt Date: 20090114
  Transmission Date: 20090719
  Serious: Yes (Hospitalization)
  Sender: FDA-Public Use
  Company Number: US-ELI_LILLY_AND_COMPANY-US200901002354

PATIENT
  Age: 40 Year
  Sex: Female

DRUGS (5)
  1. HUMALOG [Suspect]
     Indication: DIABETES MELLITUS
     Dates: start: 20020101
  2. DIOVAN [Concomitant]
     Indication: BLOOD PRESSURE
     Dates: start: 20080801, end: 20080901
  3. MICARDIS [Concomitant]
     Indication: BLOOD PRESSURE
     Dates: start: 20080901
  4. LASIX [Concomitant]
  5. LOPRESSOR [Concomitant]

REACTIONS (11)
  - BLOOD GLUCOSE INCREASED [None]
  - CEREBROVASCULAR ACCIDENT [None]
  - CHEST PAIN [None]
  - COLOUR BLINDNESS [None]
  - DIZZINESS [None]
  - FEELING ABNORMAL [None]
  - HEADACHE [None]
  - HYPERTENSION [None]
  - HYPOTENSION [None]
  - MYOCARDIAL INFARCTION [None]
  - THROMBOSIS [None]
